FAERS Safety Report 10249370 (Version 1)
Quarter: 2014Q2

REPORT INFORMATION
  Report Type: Spontaneous
  Country: US (occurrence: US)
  Receive Date: 20140620
  Receipt Date: 20140620
  Transmission Date: 20141212
  Serious: Yes (Hospitalization)
  Sender: FDA-Public Use
  Company Number: US-SA-2014SA076338

PATIENT
  Age: 77 Year
  Sex: Female

DRUGS (2)
  1. LANTUS [Suspect]
     Indication: DIABETES MELLITUS
     Dosage: START DATE: A YEAR AGO
     Route: 065
  2. HUMULIN R [Concomitant]
     Dosage: FREQUENCY: AT MEALTIME DOSE:5 UNIT(S)

REACTIONS (5)
  - Cellulitis [Unknown]
  - Neuropathy peripheral [Unknown]
  - Condition aggravated [Unknown]
  - Blood glucose increased [Unknown]
  - Memory impairment [Unknown]
